FAERS Safety Report 7013139-1 (Version None)
Quarter: 2010Q3

REPORT INFORMATION
  Report Type: 
  Country: None (occurrence: None)
  Receive Date: 20100924
  Receipt Date: 20100922
  Transmission Date: 20110219
  Serious: Yes (Hospitalization, Other)
  Sender: FDA-Public Use
  Company Number: IT-ROXANE LABORATORIES, INC.-2010-RO-01263RO

PATIENT
  Age: 53 Year
  Sex: Female

DRUGS (4)
  1. LITHIUM CARBONATE [Suspect]
     Indication: ANXIETY
  2. LITHIUM CARBONATE [Suspect]
     Indication: DEPRESSION
  3. ALPRAZOLAM [Suspect]
     Indication: DEPRESSION
  4. CLOMIPRAMINE [Suspect]
     Indication: DEPRESSION

REACTIONS (6)
  - DEHYDRATION [None]
  - ELECTROENCEPHALOGRAM ABNORMAL [None]
  - GASTROINTESTINAL INFECTION [None]
  - INTENTIONAL DRUG MISUSE [None]
  - METABOLIC ACIDOSIS [None]
  - THERAPEUTIC AGENT TOXICITY [None]
